FAERS Safety Report 7516158-1 (Version None)
Quarter: 2011Q2

REPORT INFORMATION
  Report Type: 
  Country: None (occurrence: None)
  Receive Date: 20110601
  Receipt Date: 20110525
  Transmission Date: 20111010
  Serious: Yes (Death, Other)
  Sender: FDA-Public Use
  Company Number: TR-ROXANE LABORATORIES, INC.-2011-RO-00729RO

PATIENT
  Age: 11 Year
  Sex: Male

DRUGS (5)
  1. PREDNISOLONE [Suspect]
  2. PREDNISOLONE [Suspect]
     Indication: CROHN'S DISEASE
  3. AZATHIOPRINE [Suspect]
     Indication: CROHN'S DISEASE
  4. MESALAMINE [Suspect]
     Indication: CROHN'S DISEASE
     Route: 048
  5. COLCHICINE [Suspect]
     Indication: FAMILIAL MEDITERRANEAN FEVER

REACTIONS (2)
  - HISTIOCYTOSIS HAEMATOPHAGIC [None]
  - CROHN'S DISEASE [None]
